FAERS Safety Report 23354382 (Version 3)
Quarter: 2024Q1

REPORT INFORMATION
  Report Type: Report from Study
  Country: CA (occurrence: CA)
  Receive Date: 20240101
  Receipt Date: 20240205
  Transmission Date: 20240410
  Serious: Yes (Other)
  Sender: FDA-Public Use
  Company Number: CA-SAMSUNG BIOEPIS-SB-2023-33150

PATIENT
  Age: 52 Year
  Sex: Female

DRUGS (2)
  1. RENFLEXIS [Suspect]
     Active Substance: INFLIXIMAB-ABDA
     Indication: Behcet^s syndrome
     Route: 042
     Dates: start: 20231031, end: 20231223
  2. RENFLEXIS [Suspect]
     Active Substance: INFLIXIMAB-ABDA
     Dosage: UNKNOWN
     Route: 065

REACTIONS (18)
  - Headache [Recovering/Resolving]
  - Systemic inflammatory response syndrome [Recovering/Resolving]
  - Chest discomfort [Unknown]
  - Hot flush [Recovering/Resolving]
  - Renal pain [Unknown]
  - Lethargy [Unknown]
  - Asthenia [Unknown]
  - Oropharyngeal pain [Unknown]
  - Depressed mood [Recovering/Resolving]
  - Fatigue [Not Recovered/Not Resolved]
  - Paraesthesia [Recovering/Resolving]
  - Eye discharge [Recovering/Resolving]
  - Myalgia [Recovering/Resolving]
  - Muscle spasms [Recovering/Resolving]
  - Eye irritation [Recovered/Resolved]
  - Pharyngeal erythema [Unknown]
  - Mouth ulceration [Unknown]
  - Product use in unapproved indication [Unknown]

NARRATIVE: CASE EVENT DATE: 20231102
